FAERS Safety Report 5161813-4 (Version None)
Quarter: 2006Q4

REPORT INFORMATION
  Report Type: 
  Country: None (occurrence: None)
  Receive Date: 20061130
  Receipt Date: 20061114
  Transmission Date: 20070319
  Serious: Yes (Hospitalization)
  Sender: FDA-Public Use
  Company Number: HU-ELI_LILLY_AND_COMPANY-HU200611002859

PATIENT
  Age: 81 Year
  Sex: Female

DRUGS (11)
  1. ASTRIX [Concomitant]
     Indication: MYOCARDIAL ISCHAEMIA
     Dosage: 100 MG, DAILY (1/D)
     Route: 048
  2. PREDUCTAL [Concomitant]
     Indication: MYOCARDIAL ISCHAEMIA
     Dosage: 40 MG, DAILY (1/D)
     Route: 048
  3. ZOCOR [Concomitant]
     Indication: MYOCARDIAL ISCHAEMIA
     Dosage: 20 MG, DAILY (1/D)
     Route: 048
  4. NITROMINT [Concomitant]
     Indication: CORONARY ARTERY DISEASE
     Dosage: UNK UNK, DAILY (1/D)
     Route: 062
  5. RENITEC [Concomitant]
     Indication: HYPERTENSION
     Dosage: 10 MG, 2/D
     Route: 048
  6. CALCIUM-D-SANDOZ [Concomitant]
     Dosage: UNK UNK, DAILY (1/D)
     Route: 048
  7. EUTHYROX [Concomitant]
     Indication: HYPOTHYROIDISM
     Dosage: 125 MG, DAILY (1/D)
  8. HUMULIN R [Suspect]
     Indication: DIABETES MELLITUS
     Dosage: 16 IU, EACH MORNING
     Route: 058
     Dates: start: 19960101
  9. HUMULIN R [Suspect]
     Dosage: 9 IU, OTHER
     Route: 058
     Dates: start: 19960101
  10. HUMULIN R [Suspect]
     Dosage: 8 IU, EACH EVENING
     Route: 058
     Dates: start: 19960101
  11. HUMULIN N [Suspect]
     Indication: DIABETES MELLITUS
     Dosage: 10 IU, EACH EVENING
     Route: 058
     Dates: start: 19960101

REACTIONS (1)
  - EYE OPERATION [None]
